FAERS Safety Report 24417932 (Version 3)
Quarter: 2024Q4

REPORT INFORMATION
  Report Type: Report from Study
  Country: US (occurrence: US)
  Receive Date: 20241009
  Receipt Date: 20241024
  Transmission Date: 20250114
  Serious: Yes (Hospitalization, Disabling)
  Sender: PFIZER
  Company Number: IN-PFIZER INC-202400272445

PATIENT
  Age: 44 Year
  Sex: Female
  Weight: 56.5 kg

DRUGS (5)
  1. METHOTREXATE SODIUM [Suspect]
     Active Substance: METHOTREXATE SODIUM
     Indication: Central nervous system lymphoma
     Dosage: 8000 MG/M2 (C1D10) ONCE EVERY 2 WEEKS
     Dates: start: 20240723, end: 20240723
  2. METHOTREXATE SODIUM [Suspect]
     Active Substance: METHOTREXATE SODIUM
     Dosage: 8 G/M2, 12720 MG
     Dates: start: 20240727, end: 20240727
  3. RITUXIMAB [Suspect]
     Active Substance: RITUXIMAB
     Dosage: 375 MG/M2 (C1D10)
     Dates: start: 20240725
  4. TEMOZOLOMIDE [Suspect]
     Active Substance: TEMOZOLOMIDE
     Indication: Central nervous system lymphoma
     Dosage: 240 MG (C1D10)
     Dates: start: 20240723, end: 20240729
  5. TIRABRUTINIB [Suspect]
     Active Substance: TIRABRUTINIB
     Indication: Central nervous system lymphoma
     Dosage: 480 MG (C1D10)
     Dates: start: 20240730, end: 20240731

REACTIONS (1)
  - Leukoencephalopathy [Recovered/Resolved]

NARRATIVE: CASE EVENT DATE: 20240727
